FAERS Safety Report 4922307-1 (Version None)
Quarter: 2006Q1

REPORT INFORMATION
  Report Type: 
  Country: None (occurrence: None)
  Receive Date: 20060224
  Receipt Date: 20051219
  Transmission Date: 20060701
  Serious: Yes (Hospitalization)
  Sender: FDA-Public Use
  Company Number: JP-MERCK-0512USA03458

PATIENT
  Age: 58 Year
  Sex: Male

DRUGS (11)
  1. PEPCID RPD [Suspect]
     Indication: GASTRIC ULCER
     Route: 048
     Dates: start: 20051117, end: 20051219
  2. ULCERLMIN [Concomitant]
     Route: 048
     Dates: start: 20051103
  3. OMEPRAL [Concomitant]
     Route: 065
     Dates: start: 20051103, end: 20051116
  4. LOXONIN [Concomitant]
     Route: 048
     Dates: start: 20051205, end: 20051215
  5. SELBEX [Concomitant]
     Route: 048
     Dates: start: 20051205, end: 20051215
  6. FLOMOX [Concomitant]
     Route: 048
     Dates: start: 20051208, end: 20051212
  7. TAKEPRON [Concomitant]
     Route: 048
     Dates: start: 20051221
  8. RANDA [Concomitant]
     Route: 065
     Dates: start: 20051108
  9. NASEA [Concomitant]
     Route: 065
     Dates: start: 20051108
  10. DECADRON [Concomitant]
     Route: 065
     Dates: start: 20051108
  11. FLUMARIN [Concomitant]
     Route: 065
     Dates: start: 20051205, end: 20051208

REACTIONS (1)
  - PLATELET COUNT INCREASED [None]
